FAERS Safety Report 20460043 (Version 1)
Quarter: 2022Q1

REPORT INFORMATION
  Report Type: Report from Study
  Country: BG (occurrence: BG)
  Receive Date: 20220211
  Receipt Date: 20220211
  Transmission Date: 20220423
  Serious: Yes (Death, Hospitalization, Other)
  Sender: FDA-Public Use
  Company Number: None

PATIENT
  Age: 74 Year
  Sex: Male
  Weight: 60 kg

DRUGS (2)
  1. CARBOPLATIN [Suspect]
     Active Substance: CARBOPLATIN
     Indication: Non-small cell lung cancer
     Route: 042
     Dates: start: 20210127, end: 20210127
  2. PEMETREXED [Suspect]
     Active Substance: PEMETREXED
     Indication: Non-small cell lung cancer
     Dosage: 500 MG/SQ.METER A DAY
     Route: 042
     Dates: start: 20210127, end: 20210127

REACTIONS (4)
  - Anaemia [Recovered/Resolved]
  - Deep vein thrombosis [Recovered/Resolved]
  - Neutropenia [Recovered/Resolved]
  - Sudden death [Fatal]

NARRATIVE: CASE EVENT DATE: 20210304
